FAERS Safety Report 23468282 (Version 1)
Quarter: 2024Q1

REPORT INFORMATION
  Report Type: Other
  Country: GR (occurrence: GR)
  Receive Date: 20240201
  Receipt Date: 20240201
  Transmission Date: 20240410
  Serious: Yes (Other)
  Sender: FDA-Public Use
  Company Number: GR-PFIZER INC-PV202400003572

PATIENT
  Age: 46 Year
  Sex: Female

DRUGS (4)
  1. MEROPENEM [Suspect]
     Active Substance: MEROPENEM
     Indication: Klebsiella bacteraemia
     Dosage: UNK
     Route: 042
  2. MEROPENEM [Suspect]
     Active Substance: MEROPENEM
     Indication: CNS ventriculitis
  3. TIGECYCLINE [Suspect]
     Active Substance: TIGECYCLINE
     Indication: Klebsiella bacteraemia
     Dosage: 2 MILLIGRAM, BID
  4. TIGECYCLINE [Suspect]
     Active Substance: TIGECYCLINE
     Indication: CNS ventriculitis
     Dosage: UNK
     Route: 042

REACTIONS (2)
  - CNS ventriculitis [Recovered/Resolved]
  - Disease recurrence [Recovered/Resolved]
